FAERS Safety Report 5599435-3 (Version None)
Quarter: 2008Q1

REPORT INFORMATION
  Report Type: 
  Country: None (occurrence: None)
  Receive Date: 20080122
  Receipt Date: 20080110
  Transmission Date: 20080703
  Serious: Yes (Hospitalization)
  Sender: FDA-Public Use
  Company Number: CH-PFIZER INC-2008003359

PATIENT
  Sex: Male

DRUGS (1)
  1. DALACIN T [Suspect]
     Route: 061

REACTIONS (1)
  - GASTROENTERITIS [None]
